FAERS Safety Report 6678259-X (Version None)
Quarter: 2010Q2

REPORT INFORMATION
  Report Type: 
  Country: None (occurrence: None)
  Receive Date: 20100412
  Receipt Date: 20100402
  Transmission Date: 20101027
  Serious: Yes (Other)
  Sender: FDA-Public Use
  Company Number: JP-BRISTOL-MYERS SQUIBB COMPANY-15019979

PATIENT
  Age: 39 Year
  Sex: Female

DRUGS (2)
  1. ABILIFY [Suspect]
     Indication: SCHIZOPHRENIA
     Dosage: REG 2:24MG QD 11SEP09-18NOV09 REG3:12MG QD 19NOV09-12FEB10
     Route: 048
     Dates: start: 20090731, end: 20100212
  2. AMOBAN [Suspect]
     Indication: INSOMNIA
     Dosage: TABS; AS NEEDED
     Route: 048
     Dates: start: 20090731, end: 20100212

REACTIONS (5)
  - ABORTION MISSED [None]
  - AKATHISIA [None]
  - DRUG EXPOSURE DURING PREGNANCY [None]
  - INTRA-UTERINE DEATH [None]
  - PREGNANCY [None]
